FAERS Safety Report 12207295 (Version 1)
Quarter: 2016Q1

REPORT INFORMATION
  Report Type: Spontaneous
  Country: US (occurrence: None)
  Receive Date: 20160323
  Receipt Date: 20160323
  Transmission Date: 20160526
  Serious: Yes (Hospitalization)
  Sender: FDA-Public Use
  Company Number: None

PATIENT
  Age: 72 Year
  Sex: Female

DRUGS (14)
  1. WARFARIN [Suspect]
     Active Substance: WARFARIN
     Indication: ANTICOAGULANT THERAPY
     Dosage: 6 MG MWF AND 4 MG EVERY OTHER DAY DAILY PO
     Route: 048
  2. ACETAMINOPHEN. [Concomitant]
     Active Substance: ACETAMINOPHEN
  3. ASPIRIN. [Concomitant]
     Active Substance: ASPIRIN
  4. LANSOPRAZOLE. [Concomitant]
     Active Substance: LANSOPRAZOLE
  5. CALCIUM + VITAMIN D [Concomitant]
     Active Substance: CALCIUM\VITAMIN D
  6. MULTIVITAMIN [Concomitant]
     Active Substance: VITAMINS
  7. SODIUM CHLORIDE. [Concomitant]
     Active Substance: SODIUM CHLORIDE
  8. CARVEDILOL. [Concomitant]
     Active Substance: CARVEDILOL
  9. FERROUS SULFATE [Concomitant]
     Active Substance: FERROUS SULFATE\FERROUS SULFATE, DRIED
  10. LEVOTHYROXINE. [Concomitant]
     Active Substance: LEVOTHYROXINE
  11. ROSUVASTATIN [Concomitant]
     Active Substance: ROSUVASTATIN
  12. FUROSEMIDE. [Concomitant]
     Active Substance: FUROSEMIDE
  13. DOCUSATE [Concomitant]
     Active Substance: DOCUSATE
  14. POTASSIUM CHLORIDE. [Concomitant]
     Active Substance: POTASSIUM CHLORIDE

REACTIONS (4)
  - Haematoma [None]
  - Muscle strain [None]
  - International normalised ratio increased [None]
  - Haemoglobin decreased [None]

NARRATIVE: CASE EVENT DATE: 20160215
